FAERS Safety Report 10128370 (Version 1)
Quarter: 2014Q2

REPORT INFORMATION
  Report Type: Spontaneous
  Country: US (occurrence: US)
  Receive Date: 20140428
  Receipt Date: 20140428
  Transmission Date: 20141212
  Serious: No
  Sender: FDA-Public Use
  Company Number: US-BIOGENIDEC-2014BI036913

PATIENT
  Age: 63 Year
  Sex: Female

DRUGS (16)
  1. TECFIDERA [Suspect]
     Indication: MULTIPLE SCLEROSIS
     Route: 048
  2. BACLOFEN [Concomitant]
  3. BUTALBITAL-APAP-CAFF-COD [Concomitant]
  4. GABAPENTIN [Concomitant]
  5. IMIPRAMINE HCL [Concomitant]
  6. LEVOTHROID [Concomitant]
  7. NAPROXEN COMFORT PAC [Concomitant]
  8. PRAVASTATIN SODIUM [Concomitant]
  9. PREDNISONE PAK [Concomitant]
  10. RANITIDINE HCL [Concomitant]
  11. SUMATRIPTAN SUCCINATE [Concomitant]
  12. TOPIRAMATE [Concomitant]
  13. ZOLOFT [Concomitant]
  14. ASPIRIN [Concomitant]
  15. CALCIUM + VITAMIN D3 [Concomitant]
  16. FOLIC ACID [Concomitant]

REACTIONS (2)
  - Muscular weakness [Unknown]
  - Pain [Unknown]
